FAERS Safety Report 8332911-9 (Version None)
Quarter: 2012Q1

REPORT INFORMATION
  Report Type: 
  Country: None (occurrence: None)
  Receive Date: 20120327
  Receipt Date: 20110119
  Transmission Date: 20120608
  Serious: Yes (Hospitalization)
  Sender: FDA-Public Use
  Company Number: PHHY2011US04712

PATIENT
  Age: 85 Year
  Sex: Male

DRUGS (11)
  1. VITAMIN B12 [Concomitant]
  2. AMLODIPINE [Concomitant]
  3. LISINOPRIL [Concomitant]
  4. SIMVASTATIN [Concomitant]
  5. PROBENECID [Concomitant]
  6. VITAMIN B6 [Concomitant]
  7. ASPIRIN [Concomitant]
  8. GLEEVEC [Suspect]
     Dosage: 400 MG, QD
  9. MICROZIDE [Concomitant]
  10. IBUPROFEN [Concomitant]
  11. VITAMIN D [Concomitant]

REACTIONS (8)
  - DECREASED APPETITE [None]
  - PERICARDIAL EFFUSION [None]
  - CONFUSIONAL STATE [None]
  - SWELLING FACE [None]
  - ANAEMIA [None]
  - BLOOD SODIUM DECREASED [None]
  - ARTHRALGIA [None]
  - NAUSEA [None]
